FAERS Safety Report 10338358 (Version 4)
Quarter: 2015Q1

REPORT INFORMATION
  Report Type: Report from Study
  Country: AU (occurrence: AU)
  Receive Date: 20140724
  Receipt Date: 20150218
  Transmission Date: 20150720
  Serious: Yes (Disabling, Other)
  Sender: FDA-Public Use
  Company Number: PHHY2014AU090100

PATIENT
  Age: 56 Year
  Sex: Male

DRUGS (4)
  1. CLOZARIL [Suspect]
     Active Substance: CLOZAPINE
     Indication: SCHIZOPHRENIA
     Dosage: 150 MG, QD
     Route: 048
     Dates: start: 1996
  2. CLOZARIL [Suspect]
     Active Substance: CLOZAPINE
     Dosage: 125 OT, UNK
     Route: 048
     Dates: start: 20011030, end: 20150211
  3. CLOZARIL [Suspect]
     Active Substance: CLOZAPINE
     Dosage: 175 MG, QD (50 MG MANE AND 125 MG NOCTE)
     Route: 048
     Dates: start: 1996
  4. CLOZARIL [Suspect]
     Active Substance: CLOZAPINE
     Dosage: 150 MG, QD (25 MG MANE AND 125 MG NOCTE)
     Route: 048

REACTIONS (23)
  - Left ventricular dysfunction [Unknown]
  - Dilatation ventricular [Not Recovered/Not Resolved]
  - Dyspnoea paroxysmal nocturnal [Not Recovered/Not Resolved]
  - Mitral valve incompetence [Unknown]
  - Tricuspid valve incompetence [Unknown]
  - Ventricular extrasystoles [Unknown]
  - Brain natriuretic peptide increased [Unknown]
  - Pericardial effusion [Unknown]
  - Cardiomyopathy [Unknown]
  - Ejection fraction decreased [Not Recovered/Not Resolved]
  - Pulmonary valve incompetence [Unknown]
  - Oedema peripheral [Not Recovered/Not Resolved]
  - Fluid retention [Unknown]
  - Hallucination, auditory [Unknown]
  - Cough [Unknown]
  - Left ventricular hypertrophy [Unknown]
  - Orthopnoea [Not Recovered/Not Resolved]
  - Ventricular hypokinesia [Unknown]
  - Diastolic dysfunction [Unknown]
  - Coronary artery disease [Unknown]
  - Congestive cardiomyopathy [Unknown]
  - Dyspnoea [Unknown]
  - Exercise tolerance decreased [Unknown]

NARRATIVE: CASE EVENT DATE: 20110622
